FAERS Safety Report 21684166 (Version 1)
Quarter: 2022Q4

REPORT INFORMATION
  Report Type: Report from Study
  Country: US (occurrence: US)
  Receive Date: 20221205
  Receipt Date: 20221205
  Transmission Date: 20230112
  Serious: Yes (Hospitalization, Other)
  Sender: FDA-Public Use
  Company Number: US-ABBVIE-22K-163-4372349-00

PATIENT
  Age: 54 Year
  Sex: Female

DRUGS (3)
  1. HUMIRA [Suspect]
     Active Substance: ADALIMUMAB
     Indication: Crohn^s disease
     Route: 058
     Dates: start: 20211020, end: 20221109
  2. HUMIRA [Suspect]
     Active Substance: ADALIMUMAB
     Route: 058
  3. HUMIRA [Suspect]
     Active Substance: ADALIMUMAB
     Route: 058

REACTIONS (21)
  - Stoma creation [Unknown]
  - Obstruction [Not Recovered/Not Resolved]
  - Fatigue [Unknown]
  - Constipation [Unknown]
  - Nausea [Unknown]
  - Pouchitis [Unknown]
  - Defaecation urgency [Unknown]
  - Decreased appetite [Unknown]
  - Haematochezia [Unknown]
  - Asthenia [Not Recovered/Not Resolved]
  - Nasal congestion [Unknown]
  - Insomnia [Unknown]
  - Gastrointestinal sounds abnormal [Not Recovered/Not Resolved]
  - Anxiety [Unknown]
  - Diarrhoea [Recovered/Resolved]
  - Arthralgia [Unknown]
  - Depressed mood [Unknown]
  - Drug ineffective [Unknown]
  - Dyschezia [Unknown]
  - Flatulence [Unknown]
  - Frequent bowel movements [Unknown]

NARRATIVE: CASE EVENT DATE: 20211020
